FAERS Safety Report 12407975 (Version 1)
Quarter: 2016Q2

REPORT INFORMATION
  Report Type: Spontaneous
  Country: US (occurrence: US)
  Receive Date: 20160526
  Receipt Date: 20160526
  Transmission Date: 20160815
  Serious: Yes (Other)
  Sender: FDA-Public Use
  Company Number: US-SHIRE-US201606013

PATIENT
  Age: 68 Year
  Sex: Female
  Weight: 46.26 kg

DRUGS (4)
  1. CARBATROL [Suspect]
     Active Substance: CARBAMAZEPINE
     Indication: TRIGEMINAL NEURALGIA
     Dosage: 200 MG, 1X/DAY:QD
     Route: 048
     Dates: start: 2011, end: 20160316
  2. ALENDRONATE [Concomitant]
     Active Substance: ALENDRONATE SODIUM
     Indication: OSTEOPOROSIS
     Dosage: 70 MG, 1X/WEEK
     Route: 048
  3. CARBATROL [Suspect]
     Active Substance: CARBAMAZEPINE
     Dosage: 400 MG (TWO 200 MG TABLETS), 1X/DAY:QD
     Route: 048
     Dates: start: 20160317, end: 201604
  4. CARBATROL [Suspect]
     Active Substance: CARBAMAZEPINE
     Dosage: 200 MG, 1X/DAY:QD
     Route: 048
     Dates: start: 201604

REACTIONS (4)
  - Weight decreased [Unknown]
  - Trigeminal neuralgia [Unknown]
  - Coeliac disease [Unknown]
  - Condition aggravated [Unknown]

NARRATIVE: CASE EVENT DATE: 201509
